FAERS Safety Report 5061859-0 (Version None)
Quarter: 2006Q3

REPORT INFORMATION
  Report Type: 
  Country: None (occurrence: None)
  Receive Date: 20060703
  Receipt Date: 20060206
  Transmission Date: 20061208
  Serious: No
  Sender: FDA-Public Use
  Company Number: 2006S1001165

PATIENT
  Age: 20 Year
  Sex: Female
  Weight: 81.1939 kg

DRUGS (7)
  1. CLOZAPINE [Suspect]
     Indication: SCHIZOPHRENIA
     Dosage: 150 MG;HS;ORAL
     Route: 048
     Dates: start: 20051114
  2. BENZTROPINE MESYLATE [Concomitant]
  3. LANSOPRAZOLE [Concomitant]
  4. INSULIN [Concomitant]
  5. INJECTION, ISOPHANE [Concomitant]
  6. FLUPHENAZINE [Concomitant]
  7. HYDROCHLORIDE [Concomitant]

REACTIONS (1)
  - GRANULOCYTOPENIA [None]
